FAERS Safety Report 7474009-8 (Version None)
Quarter: 2011Q2

REPORT INFORMATION
  Report Type: 
  Country: None (occurrence: None)
  Receive Date: 20110511
  Receipt Date: 20091122
  Transmission Date: 20111010
  Serious: Yes (Death, Hospitalization, Other)
  Sender: FDA-Public Use
  Company Number: US-BAYER-200940219NA

PATIENT
  Age: 55 Year
  Sex: Female
  Weight: 131 kg

DRUGS (15)
  1. NIPRIDE [Concomitant]
     Dosage: UNK
     Route: 042
     Dates: start: 20061013, end: 20061013
  2. TRASYLOL [Suspect]
     Indication: CORONARY ARTERY BYPASS
     Dosage: 300 ML BOLUS FOLLOWED BY 50 ML/ HOUR INFUSION
     Route: 042
     Dates: end: 20061013
  3. SYNTHROID [Concomitant]
     Dosage: UNK
     Dates: start: 20061012
  4. LOVENOX [Concomitant]
     Dosage: UNK
     Dates: start: 20061012
  5. PROTAMINE SULFATE [Concomitant]
  6. DOBUTAMINE HYDROCHLORIDE [Concomitant]
  7. RED BLOOD CELLS [Concomitant]
     Dosage: 1 U, UNK
     Dates: start: 20061013
  8. VANCOMYCIN [Concomitant]
     Dosage: UNK
     Dates: start: 20061012
  9. NAFCILLIN [Concomitant]
     Dosage: 2 G, UNK
     Route: 042
     Dates: start: 20061013, end: 20061013
  10. FRESH FROZEN PLASMA [Concomitant]
     Dosage: 4 U, UNK
     Dates: start: 20061013
  11. CEPHALOSPORINS AND RELATED SUBSTANCES [Concomitant]
     Dosage: UNK
     Dates: start: 20061012
  12. VERSED [Concomitant]
     Dosage: UNK
     Route: 042
     Dates: start: 20061013, end: 20061013
  13. HEPARIN [Concomitant]
     Dosage: UNK
     Route: 042
     Dates: start: 20061013, end: 20061013
  14. EPINEPHRINE [Concomitant]
  15. TRASYLOL [Suspect]
     Indication: MITRAL VALVE REPLACEMENT
     Dosage: 200 ML PUMP PRIME
     Route: 042
     Dates: start: 20061013

REACTIONS (15)
  - MYOCARDIAL INFARCTION [None]
  - EMOTIONAL DISTRESS [None]
  - RENAL IMPAIRMENT [None]
  - DEPRESSION [None]
  - RENAL INJURY [None]
  - ANXIETY [None]
  - INJURY [None]
  - RENAL FAILURE [None]
  - DEATH [None]
  - STRESS [None]
  - ANHEDONIA [None]
  - CEREBROVASCULAR ACCIDENT [None]
  - FEAR [None]
  - PAIN [None]
  - UNEVALUABLE EVENT [None]
